FAERS Safety Report 20978791 (Version 1)
Quarter: 2022Q2

REPORT INFORMATION
  Report Type: Spontaneous
  Country: ES (occurrence: ES)
  Receive Date: 20220619
  Receipt Date: 20220619
  Transmission Date: 20220721
  Serious: Yes (Death)
  Sender: FDA-Public Use
  Company Number: None

PATIENT
  Age: 85 Year
  Sex: Female

DRUGS (6)
  1. LEVOFLOXACIN [Suspect]
     Active Substance: LEVOFLOXACIN
     Indication: Infected skin ulcer
     Dosage: LEVOFLOXACINO (2791A)
     Route: 048
     Dates: start: 20220325, end: 20220420
  2. SULFAMETHOXAZOLE\TRIMETHOPRIM [Suspect]
     Active Substance: SULFAMETHOXAZOLE\TRIMETHOPRIM
     Indication: Infected skin ulcer
     Dosage: 160 MG/800 MG TABLETS, 20 TABLETS
     Route: 048
     Dates: start: 20220407, end: 20220423
  3. MIRTAZAPINE [Concomitant]
     Active Substance: MIRTAZAPINE
     Indication: Dementia Alzheimer^s type
     Dosage: MIRTAZAPINA (2704A) ,
     Route: 048
     Dates: start: 201801, end: 20220506
  4. SIMVASTATIN [Concomitant]
     Active Substance: SIMVASTATIN
     Indication: Dyslipidaemia
     Dosage: SIMVASTATINA (1023A)
     Route: 048
     Dates: start: 20210701, end: 20220506
  5. BISOPROLOL [Concomitant]
     Active Substance: BISOPROLOL
     Indication: Atrial fibrillation
     Dosage: BISOPROLOL (2328A
     Route: 048
     Dates: start: 201801, end: 20220506
  6. ELIQUIS [Concomitant]
     Active Substance: APIXABAN
     Indication: Atrial fibrillation
     Dosage: 28 TABLETS
     Route: 048
     Dates: start: 20211110, end: 20220506

REACTIONS (1)
  - Toxic epidermal necrolysis [Fatal]

NARRATIVE: CASE EVENT DATE: 20220422
